FAERS Safety Report 6021222-2 (Version None)
Quarter: 2008Q4

REPORT INFORMATION
  Report Type: 
  Country: None (occurrence: None)
  Receive Date: 20081229
  Receipt Date: 20081218
  Transmission Date: 20090506
  Serious: Yes (Death)
  Sender: FDA-Public Use
  Company Number: US-CELGENEUS-163-21880-08121244

PATIENT
  Sex: Male

DRUGS (4)
  1. REVLIMID [Suspect]
     Indication: MULTIPLE MYELOMA
     Route: 048
     Dates: start: 20070530
  2. REVLIMID [Suspect]
     Route: 048
     Dates: start: 20070423, end: 20070501
  3. REVLIMID [Suspect]
     Route: 048
     Dates: start: 20060804, end: 20070401
  4. REVLIMID [Suspect]
     Route: 048
     Dates: start: 20060512, end: 20060601

REACTIONS (6)
  - DEATH [None]
  - HERPES ZOSTER [None]
  - MUSCLE SPASMS [None]
  - NEUTROPENIA [None]
  - RED BLOOD CELL COUNT DECREASED [None]
  - WHITE BLOOD CELL COUNT DECREASED [None]
